FAERS Safety Report 24203716 (Version 1)
Quarter: 2024Q3

REPORT INFORMATION
  Report Type: Report from Study
  Country: CA (occurrence: None)
  Receive Date: 20240813
  Receipt Date: 20240813
  Transmission Date: 20241017
  Serious: Yes (Other)
  Sender: ASTRAZENECA
  Company Number: 2022A005559

PATIENT
  Sex: Female

DRUGS (2)
  1. IMFINZI [Suspect]
     Active Substance: DURVALUMAB
     Indication: Small cell lung cancer extensive stage
     Route: 042
     Dates: start: 20211207
  2. PREGABALIN [Concomitant]
     Active Substance: PREGABALIN

REACTIONS (6)
  - Neoplasm [Unknown]
  - Vomiting [Unknown]
  - Nausea [Unknown]
  - Muscular weakness [Unknown]
  - Fatigue [Unknown]
  - Pain [Unknown]
